FAERS Safety Report 8330078-4 (Version None)
Quarter: 2012Q2

REPORT INFORMATION
  Report Type: 
  Country: None (occurrence: None)
  Receive Date: 20120502
  Receipt Date: 20120426
  Transmission Date: 20120825
  Serious: Yes (Life-Threatening)
  Sender: FDA-Public Use
  Company Number: BR-PFIZER INC-2012104850

PATIENT
  Age: 50 Year
  Sex: Female

DRUGS (3)
  1. LIPITOR [Suspect]
     Dosage: 10 MG, 1X/DAY, AT NIGHT
     Route: 048
     Dates: start: 20120422
  2. LEVOTHYROXINE SODIUM [Concomitant]
     Indication: THYROID DISORDER
  3. METOPROLOL SUCCINATE [Concomitant]
     Indication: CARDIAC DISORDER

REACTIONS (10)
  - PAIN IN EXTREMITY [None]
  - GAIT DISTURBANCE [None]
  - CONFUSIONAL STATE [None]
  - THIRST [None]
  - MALAISE [None]
  - RENAL PAIN [None]
  - SENSATION OF HEAVINESS [None]
  - PAIN [None]
  - OEDEMA PERIPHERAL [None]
  - DYSPNOEA [None]
